FAERS Safety Report 7253744-0 (Version None)
Quarter: 2011Q1

REPORT INFORMATION
  Report Type: 
  Country: None (occurrence: None)
  Receive Date: 20110129
  Receipt Date: 20100129
  Transmission Date: 20110831
  Serious: No
  Sender: FDA-Public Use
  Company Number: US-ABBOTT-10P-163-0623723-00

PATIENT
  Sex: Female

DRUGS (6)
  1. SYNTHROID [Concomitant]
     Indication: HYPOTHYROIDISM
  2. FOLIC ACID [Concomitant]
  3. MANY VITAMINS [Concomitant]
  4. FOSAMAX [Concomitant]
  5. PREDNISONE [Concomitant]
  6. HUMIRA [Suspect]
     Indication: RHEUMATOID ARTHRITIS
     Dosage: 1 INJECTION RECEIVED SO FAR.
     Route: 058
     Dates: start: 20100129

REACTIONS (7)
  - DIZZINESS [None]
  - NASOPHARYNGITIS [None]
  - FEELING ABNORMAL [None]
  - PARAESTHESIA [None]
  - MUSCULOSKELETAL PAIN [None]
  - SKIN DISCOLOURATION [None]
  - CHEST DISCOMFORT [None]
